FAERS Safety Report 24384951 (Version 1)
Quarter: 2024Q3

REPORT INFORMATION
  Report Type: Spontaneous
  Country: US (occurrence: None)
  Receive Date: 20240930
  Receipt Date: 20240930
  Transmission Date: 20241017
  Serious: Yes (Disabling, Congenital Anomaly)
  Sender: Public
  Company Number: None

PATIENT
  Age: 36 Year
  Sex: Female
  Weight: 76.5 kg

DRUGS (1)
  1. METFORMIN [Suspect]
     Active Substance: METFORMIN HYDROCHLORIDE
     Indication: Gestational diabetes
     Dates: start: 20200130, end: 20231119

REACTIONS (4)
  - Maternal exposure during pregnancy [None]
  - Maternal drugs affecting foetus [None]
  - Syndactyly [None]
  - Cholelithiasis [None]

NARRATIVE: CASE EVENT DATE: 20210408
